FAERS Safety Report 8988607 (Version 2)
Quarter: 2013Q1

REPORT INFORMATION
  Report Type: Spontaneous
  Country: JP (occurrence: JP)
  Receive Date: 20121228
  Receipt Date: 20130116
  Transmission Date: 20140127
  Serious: Yes (Other)
  Sender: FDA-Public Use
  Company Number: JP-PFIZER INC-2012325162

PATIENT
  Sex: 0

DRUGS (2)
  1. FARMORUBICIN [Suspect]
     Dosage: UNK
  2. EPIRUBICIN [Concomitant]
     Indication: BREAST CANCER
     Dosage: UNK

REACTIONS (1)
  - Retinopathy [Unknown]
